FAERS Safety Report 13754221 (Version 1)
Quarter: 2017Q3

REPORT INFORMATION
  Report Type: Report from Study
  Country: US (occurrence: US)
  Receive Date: 20170714
  Receipt Date: 20170714
  Transmission Date: 20171127
  Serious: Yes (Other)
  Sender: FDA-Public Use
  Company Number: US-ELI_LILLY_AND_COMPANY-US201707005093

PATIENT
  Sex: Female

DRUGS (1)
  1. DULOXETINE HYDROCHLORIDE. [Suspect]
     Active Substance: DULOXETINE HYDROCHLORIDE
     Indication: DEPRESSION
     Dosage: 60 MG, UNK
     Route: 048

REACTIONS (6)
  - Drug withdrawal syndrome [Unknown]
  - Emotional disorder [Unknown]
  - Suicidal ideation [Unknown]
  - Depression [Unknown]
  - Malaise [Unknown]
  - Abnormal behaviour [Unknown]
